FAERS Safety Report 6152316-9 (Version None)
Quarter: 2009Q2

REPORT INFORMATION
  Report Type: 
  Country: None (occurrence: None)
  Receive Date: 20090413
  Receipt Date: 20071227
  Transmission Date: 20091009
  Serious: Yes (Death, Hospitalization, Other)
  Sender: FDA-Public Use
  Company Number: US-ASTRAZENECA-2007UW09508

PATIENT
  Age: 994 Month
  Sex: Male
  Weight: 74.4 kg

DRUGS (19)
  1. SEROQUEL [Suspect]
     Indication: SLEEP DISORDER
     Route: 048
     Dates: start: 20021115, end: 20031203
  2. SEROQUEL [Suspect]
     Route: 048
     Dates: start: 20060126, end: 20060317
  3. SEROQUEL [Suspect]
     Dosage: 25, 50, 100, 150MG
     Route: 048
     Dates: start: 20060206
  4. LIPITOR [Concomitant]
  5. PLAVIX [Concomitant]
  6. LEVAQUIN [Concomitant]
  7. CLEOCIN [Concomitant]
  8. ASPIRIN [Concomitant]
  9. SURFAK [Concomitant]
  10. CATAPRES [Concomitant]
  11. LOPRESSOR [Concomitant]
  12. PROTONIX [Concomitant]
  13. ZESTRIL [Concomitant]
  14. DESYREL [Concomitant]
  15. DECADRON [Concomitant]
  16. ATIVAN [Concomitant]
  17. METFORMIN [Concomitant]
  18. NOVOLIN [Concomitant]
  19. NITROGLYCERIN [Concomitant]

REACTIONS (12)
  - CEREBROVASCULAR ACCIDENT [None]
  - DEMENTIA ALZHEIMER'S TYPE [None]
  - DIABETES MELLITUS [None]
  - DIZZINESS [None]
  - DYSARTHRIA [None]
  - GAIT DISTURBANCE [None]
  - HEADACHE [None]
  - HYPERTENSION [None]
  - OEDEMA PERIPHERAL [None]
  - PNEUMONIA [None]
  - RESTLESS LEGS SYNDROME [None]
  - TRANSIENT ISCHAEMIC ATTACK [None]
